FAERS Safety Report 9371785 (Version 1)
Quarter: 2013Q2

REPORT INFORMATION
  Report Type: Report from Study
  Country: US (occurrence: US)
  Receive Date: 20130627
  Receipt Date: 20130627
  Transmission Date: 20140414
  Serious: Yes (Hospitalization)
  Sender: FDA-Public Use
  Company Number: US-BAYER-2013-078780

PATIENT
  Age: 51 Year
  Sex: Female

DRUGS (1)
  1. STIVARGA [Suspect]
     Indication: ANAEMIA
     Dosage: 160 MG, QD FOR 21 DAYS
     Route: 048
     Dates: start: 20130601, end: 20130612

REACTIONS (6)
  - Rash [None]
  - Neuropathy peripheral [None]
  - Skin discolouration [None]
  - Skin exfoliation [None]
  - Neuralgia [None]
  - Off label use [None]
